FAERS Safety Report 24737552 (Version 1)
Quarter: 2024Q4

REPORT INFORMATION
  Report Type: Spontaneous
  Country: US (occurrence: US)
  Receive Date: 20241216
  Receipt Date: 20241216
  Transmission Date: 20250114
  Serious: No
  Sender: ALVOGEN
  Company Number: US-ALVOGEN-2024094492

PATIENT
  Sex: Female

DRUGS (2)
  1. FENTANYL [Suspect]
     Active Substance: FENTANYL
     Indication: Pain
     Dosage: EXPIRATION DATE: UU-NOV-2026
  2. OXYCODONE [Concomitant]
     Active Substance: OXYCODONE
     Indication: Breakthrough pain
     Dosage: 15 MG
     Route: 048

REACTIONS (4)
  - Drug screen negative [Unknown]
  - Application site pruritus [Unknown]
  - Drug ineffective [Unknown]
  - Wrong technique in device usage process [Unknown]
